FAERS Safety Report 6782824-9 (Version None)
Quarter: 2010Q2

REPORT INFORMATION
  Report Type: 
  Country: None (occurrence: None)
  Receive Date: 20100616
  Receipt Date: 20100602
  Transmission Date: 20101027
  Serious: Yes (Hospitalization)
  Sender: FDA-Public Use
  Company Number: 003542

PATIENT
  Sex: Female

DRUGS (10)
  1. ROTIGOTINE (INVESTIGATIONAL DRUG) [Suspect]
     Indication: PARKINSON'S DISEASE
     Dosage: SEE IMAGE
     Route: 062
     Dates: start: 20091117, end: 20091124
  2. ROTIGOTINE (INVESTIGATIONAL DRUG) [Suspect]
     Indication: PARKINSON'S DISEASE
     Dosage: SEE IMAGE
     Route: 062
     Dates: start: 20091124, end: 20091201
  3. ROTIGOTINE (INVESTIGATIONAL DRUG) [Suspect]
     Indication: PARKINSON'S DISEASE
     Dosage: SEE IMAGE
     Route: 062
     Dates: start: 20091201, end: 20091208
  4. ROTIGOTINE (INVESTIGATIONAL DRUG) [Suspect]
     Indication: PARKINSON'S DISEASE
     Dosage: SEE IMAGE
     Route: 062
     Dates: start: 20091208, end: 20091214
  5. ROTIGOTINE (INVESTIGATIONAL DRUG) [Suspect]
     Indication: PARKINSON'S DISEASE
     Dosage: SEE IMAGE
     Route: 062
     Dates: start: 20091214, end: 20091221
  6. ROTIGOTINE (INVESTIGATIONAL DRUG) [Suspect]
     Indication: PARKINSON'S DISEASE
     Dosage: SEE IMAGE
     Route: 062
     Dates: start: 20091222, end: 20091229
  7. CARBIDOPA-LEVODOPA [Concomitant]
  8. SELEGILINE HYDROCHLORIDE [Concomitant]
  9. ENTACAPONE [Concomitant]
  10. FAMOTIDINE [Concomitant]

REACTIONS (8)
  - ANAEMIA [None]
  - ANXIETY [None]
  - BALANCE DISORDER [None]
  - DELIRIUM [None]
  - GASTRIC ULCER HAEMORRHAGE [None]
  - GASTRITIS ATROPHIC [None]
  - MELAENA [None]
  - STRESS [None]
